FAERS Safety Report 8301378-9 (Version None)
Quarter: 2012Q2

REPORT INFORMATION
  Report Type: 
  Country: None (occurrence: None)
  Receive Date: 20120420
  Receipt Date: 20120403
  Transmission Date: 20120825
  Serious: Yes (Hospitalization, Other)
  Sender: FDA-Public Use
  Company Number: DE-ROCHE-1051784

PATIENT
  Sex: Female
  Weight: 59 kg

DRUGS (3)
  1. MABTHERA [Suspect]
     Indication: NON-HODGKIN'S LYMPHOMA
     Route: 042
     Dates: start: 20120307
  2. RAMIPRIL [Concomitant]
     Route: 048
  3. BENDAMUSTINA [Suspect]
     Indication: LYMPHOPLASMACYTOID LYMPHOMA/IMMUNOCYTOMA
     Route: 042
     Dates: start: 20120307

REACTIONS (2)
  - MONOPLEGIA [None]
  - AMYOTROPHY [None]
